FAERS Safety Report 5843560-6 (Version None)
Quarter: 2008Q3

REPORT INFORMATION
  Report Type: 
  Country: None (occurrence: None)
  Receive Date: 20080812
  Receipt Date: 20080812
  Transmission Date: 20090109
  Serious: Yes (Hospitalization)
  Sender: FDA-Public Use
  Company Number: None

PATIENT
  Sex: Male
  Weight: 60.5 kg

DRUGS (2)
  1. CISPLATIN [Suspect]
     Dosage: 170 MG
     Dates: end: 20080715
  2. ERBITUX [Suspect]
     Dosage: 440 MG
     Dates: end: 20080805

REACTIONS (1)
  - FEBRILE NEUTROPENIA [None]
